FAERS Safety Report 13275646 (Version 3)
Quarter: 2017Q2

REPORT INFORMATION
  Report Type: Spontaneous
  Country: US (occurrence: US)
  Receive Date: 20170228
  Receipt Date: 20170602
  Transmission Date: 20170830
  Serious: Yes (Other)
  Sender: FDA-Public Use
  Company Number: US-SUN PHARMACEUTICAL INDUSTRIES LTD-2017US-134417

PATIENT
  Age: 81 Year
  Sex: Female

DRUGS (1)
  1. LORAZEPAM. [Suspect]
     Active Substance: LORAZEPAM
     Indication: ESSENTIAL TREMOR
     Dosage: 1 MG, EVERY 4 TO 6 HR, WITH AN AVERAGE DAILY INTAKE OF ABOUT 6 MG
     Route: 065

REACTIONS (4)
  - Dysphemia [Recovering/Resolving]
  - Parosmia [Unknown]
  - Dementia [Unknown]
  - Memory impairment [Recovering/Resolving]
